FAERS Safety Report 9339296 (Version 1)
Quarter: 2013Q2

REPORT INFORMATION
  Report Type: Report from Study
  Country: SE (occurrence: SE)
  Receive Date: 20130610
  Receipt Date: 20130610
  Transmission Date: 20140414
  Serious: Yes (Disabling, Other)
  Sender: FDA-Public Use
  Company Number: PHHY2012SE128318

PATIENT
  Sex: Female

DRUGS (21)
  1. SANDOSTATIN LAR [Suspect]
     Indication: NEUROENDOCRINE TUMOUR
     Dosage: 30 MG, TWICE EVERY SECOND WEEK
     Route: 030
     Dates: start: 20111018
  2. SANDOSTATIN LAR [Suspect]
     Dosage: 30 MG, TWICE EVERY SECOND WEEK
     Route: 030
     Dates: start: 20111109
  3. SANDOSTATIN LAR [Suspect]
     Dosage: 30 MG, TWICE EVERY SECOND WEEK
     Route: 030
     Dates: start: 20111125
  4. SANDOSTATIN LAR [Suspect]
     Dosage: 30 MG, TWICE EVERY SECOND WEEK
     Route: 030
     Dates: start: 20111214
  5. SANDOSTATIN LAR [Suspect]
     Dosage: 30 MG, TWICE EVERY SECOND WEEK
     Route: 030
     Dates: start: 20120106
  6. SANDOSTATIN LAR [Suspect]
     Dosage: 30 MG, TWICE EVERY SECOND WEEK
     Route: 030
     Dates: start: 20120126
  7. SANDOSTATIN LAR [Suspect]
     Dosage: 30 MG, TWICE EVERY SECOND WEEK
     Route: 030
     Dates: start: 20120222
  8. SANDOSTATIN LAR [Suspect]
     Dosage: 30 MG, TWICE EVERY SECOND WEEK
     Route: 030
     Dates: start: 20120316
  9. SANDOSTATIN LAR [Suspect]
     Dosage: 30 MG, TWICE EVERY SECOND WEEK
     Route: 030
     Dates: start: 20120405
  10. SANDOSTATIN LAR [Suspect]
     Dosage: 30 MG, TWICE EVERY SECOND WEEK
     Route: 030
     Dates: start: 20120425
  11. SANDOSTATIN LAR [Suspect]
     Dosage: 30 MG, TWICE EVERY SECOND WEEK
     Route: 030
     Dates: start: 20120515
  12. SANDOSTATIN LAR [Suspect]
     Dosage: 30 MG, TWICE EVERY SECOND WEEK
     Route: 030
     Dates: start: 20120608
  13. SANDOSTATIN LAR [Suspect]
     Dosage: 30 MG, TWICE EVERY SECOND WEEK
     Route: 030
     Dates: start: 20120629
  14. SANDOSTATIN LAR [Suspect]
     Dosage: 30 MG, TWICE EVERY SECOND WEEK
     Route: 030
     Dates: start: 20120718
  15. SANDOSTATIN LAR [Suspect]
     Dosage: 30 MG, TWICE EVERY SECOND WEEK
     Route: 030
     Dates: start: 20120807
  16. SANDOSTATIN LAR [Suspect]
     Dosage: 30 MG, TWICE EVERY SECOND WEEK
     Route: 030
     Dates: start: 20120827
  17. SANDOSTATIN LAR [Suspect]
     Dosage: 30 MG, TWICE EVERY SECOND WEEK
     Route: 030
     Dates: start: 20120917
  18. SANDOSTATIN LAR [Suspect]
     Dosage: 30 MG, TWICE EVERY SECOND WEEK
     Route: 030
     Dates: start: 20121012
  19. SANDOSTATIN LAR [Suspect]
     Dosage: 30 MG, TWICE EVERY SECOND WEEK
     Route: 030
     Dates: start: 20121105
  20. SANDOSTATIN LAR [Suspect]
     Dosage: 30 MG, TWICE EVERY SECOND WEEK
     Route: 030
     Dates: start: 20121123
  21. SANDOSTATIN LAR [Suspect]
     Dosage: 30 MG, TWICE EVERY SECOND WEEK
     Route: 030
     Dates: start: 20121214

REACTIONS (6)
  - Neoplasm [Unknown]
  - Injection site pain [Unknown]
  - Neuralgia [Unknown]
  - Seroma [Unknown]
  - Diarrhoea [Unknown]
  - Malaise [Unknown]
